FAERS Safety Report 22345613 (Version 1)
Quarter: 2023Q2

REPORT INFORMATION
  Report Type: Report from Study
  Country: GB (occurrence: GB)
  Receive Date: 20230519
  Receipt Date: 20230519
  Transmission Date: 20230721
  Serious: Yes (Hospitalization, Other)
  Sender: FDA-Public Use
  Company Number: GB-TAKEDA-2023TUS006618

PATIENT
  Age: 74 Year
  Sex: Female

DRUGS (3)
  1. APIXABAN [Suspect]
     Active Substance: APIXABAN
     Indication: Product used for unknown indication
     Dosage: UNK
     Route: 065
  2. REPLAGAL [Suspect]
     Active Substance: AGALSIDASE ALFA
     Indication: Fabry^s disease
     Dosage: 14 MILLIGRAM, Q2W (14 MILLIGRAM, Q2WEEKS)
     Route: 065
  3. REPLAGAL [Suspect]
     Active Substance: AGALSIDASE ALFA
     Dosage: 14 MILLIGRAM, Q2W (14 MILLIGRAM, Q2WEEKS), START DATE: 23-APR-2012
     Route: 065
     Dates: start: 20120423

REACTIONS (15)
  - Sepsis [Unknown]
  - Gastroenteritis [Unknown]
  - Infection [Unknown]
  - Syncope [Unknown]
  - Pulmonary embolism [Unknown]
  - Deep vein thrombosis [Unknown]
  - Decreased appetite [Unknown]
  - Fatigue [Unknown]
  - Illness [Unknown]
  - Food poisoning [Unknown]
  - Depression [Unknown]
  - Blood pressure decreased [Unknown]
  - Tachycardia [Unknown]
  - Device occlusion [Unknown]
  - Nausea [Unknown]

NARRATIVE: CASE EVENT DATE: 20230214
